FAERS Safety Report 5752945-8 (Version None)
Quarter: 2008Q2

REPORT INFORMATION
  Report Type: 
  Country: None (occurrence: None)
  Receive Date: 20080529
  Receipt Date: 20080521
  Transmission Date: 20081010
  Serious: Yes (Hospitalization)
  Sender: FDA-Public Use
  Company Number: JP-ABBOTT-08P-087-0452780-00

PATIENT
  Sex: Female

DRUGS (1)
  1. KLARICID TABLET [Suspect]
     Indication: PNEUMONIA
     Route: 048
     Dates: start: 20080428

REACTIONS (2)
  - PYREXIA [None]
  - URTICARIA [None]
